FAERS Safety Report 4598701-8 (Version None)
Quarter: 2005Q1

REPORT INFORMATION
  Report Type: 
  Country: None (occurrence: None)
  Receive Date: 20050304
  Receipt Date: 20050223
  Transmission Date: 20050727
  Serious: Yes (Hospitalization, Other)
  Sender: FDA-Public Use
  Company Number: US-BRISTOL-MYERS SQUIBB COMPANY-12877221

PATIENT
  Age: 43 Year
  Sex: Male

DRUGS (3)
  1. ARIPIPRAZOLE [Suspect]
     Indication: DEPRESSION
  2. ARIPIPRAZOLE [Interacting]
     Indication: PSYCHOTIC DISORDER
  3. FLUOXETINE [Interacting]

REACTIONS (6)
  - ALANINE AMINOTRANSFERASE INCREASED [None]
  - DEPRESSIVE SYMPTOM [None]
  - DRUG INTERACTION [None]
  - NEUROLEPTIC MALIGNANT SYNDROME [None]
  - PSYCHOTIC DISORDER [None]
  - SEROTONIN SYNDROME [None]
